FAERS Safety Report 8532283-0 (Version None)
Quarter: 2012Q3

REPORT INFORMATION
  Report Type: 
  Country: None (occurrence: None)
  Receive Date: 20120724
  Receipt Date: 20120718
  Transmission Date: 20120928
  Serious: No
  Sender: FDA-Public Use
  Company Number: US-009507513-1206USA02130

PATIENT

DRUGS (3)
  1. EMEND [Suspect]
     Indication: PROPHYLAXIS OF NAUSEA AND VOMITING
     Route: 048
     Dates: start: 20120611
  2. EMEND [Suspect]
     Dosage: 80 MG, UNK
     Route: 048
     Dates: start: 20120612
  3. EMEND [Suspect]
     Dosage: 80 MG, UNK
     Route: 048
     Dates: start: 20120613

REACTIONS (4)
  - UNDERDOSE [None]
  - DRUG INEFFECTIVE [None]
  - PRODUCT PACKAGING QUANTITY ISSUE [None]
  - NAUSEA [None]
